FAERS Safety Report 4511221-1 (Version None)
Quarter: 2004Q4

REPORT INFORMATION
  Report Type: 
  Country: None (occurrence: None)
  Receive Date: 20041122
  Receipt Date: 20041122
  Transmission Date: 20050328
  Serious: Yes (Hospitalization)
  Sender: FDA-Public Use
  Company Number: None

PATIENT
  Sex: Female
  Weight: 52.6173 kg

DRUGS (3)
  1. METOPROLOL   50 MG [Suspect]
     Indication: CARDIAC DISORDER
     Dosage: 1/2  2 X DAY
     Dates: start: 20030321, end: 20030326
  2. METOPROLOL   50 MG [Suspect]
     Indication: CORONARY ARTERIAL STENT INSERTION
     Dosage: 1/2  2 X DAY
     Dates: start: 20030321, end: 20030326
  3. ZOCOR [Suspect]
     Indication: BLOOD CHOLESTEROL
     Dosage: 1 X DAY
     Dates: start: 20040304, end: 20040425

REACTIONS (3)
  - ANAEMIA [None]
  - GASTRIC HAEMORRHAGE [None]
  - MUSCLE CRAMP [None]
